FAERS Safety Report 9731604 (Version 1)
Quarter: 2013Q4

REPORT INFORMATION
  Report Type: Spontaneous
  Country: US (occurrence: None)
  Receive Date: 20131204
  Receipt Date: 20131204
  Transmission Date: 20140711
  Serious: Yes (Death)
  Sender: FDA-Public Use
  Company Number: None

PATIENT
  Age: 57 Year
  Sex: Female

DRUGS (1)
  1. AVONEX 30MCG BIOGEN [Suspect]
     Indication: MULTIPLE SCLEROSIS
     Dosage: 1 SHOT, WEEKLY, INTO THE MUSCLE
     Route: 030

REACTIONS (1)
  - Colon cancer [None]
